FAERS Safety Report 18458334 (Version 1)
Quarter: 2020Q4

REPORT INFORMATION
  Report Type: Spontaneous
  Country: US (occurrence: US)
  Receive Date: 20201103
  Receipt Date: 20201103
  Transmission Date: 20210114
  Serious: No
  Sender: FDA-Public Use
  Company Number: None

PATIENT
  Age: 66 Year
  Sex: Male
  Weight: 94.6 kg

DRUGS (12)
  1. APIXABAN 2.5 MG [Concomitant]
     Active Substance: APIXABAN
  2. CEFTRIAXONE 1 GM [Concomitant]
     Active Substance: CEFTRIAXONE
  3. LORATIDINE 10 MG [Concomitant]
  4. PANTOPRAZOLE 40 MG [Concomitant]
     Active Substance: PANTOPRAZOLE SODIUM
  5. ZINC SULFATE 220 MG [Concomitant]
  6. REMDESIVIR. [Suspect]
     Active Substance: REMDESIVIR
     Indication: COVID-19
     Route: 042
     Dates: start: 20201031
  7. LACTATED RINGERS SOLUTION [Concomitant]
     Active Substance: CALCIUM CHLORIDE\POTASSIUM CHLORIDE\SODIUM CHLORIDE\SODIUM LACTATE
  8. MOMETASONE/FORMOTEROL 200/5 MCG [Concomitant]
  9. THIAMINE 100 MG [Concomitant]
  10. AZITHROMYCIN 250 MG [Concomitant]
     Active Substance: AZITHROMYCIN ANHYDROUS
  11. CHOLECALCIFEROL 2000 IU [Concomitant]
  12. DEXAMETHASONE 6 MG [Concomitant]

REACTIONS (5)
  - Hyperhidrosis [None]
  - Nausea [None]
  - Flushing [None]
  - Cold sweat [None]
  - Infusion related reaction [None]

NARRATIVE: CASE EVENT DATE: 20201102
